FAERS Safety Report 11359673 (Version 2)
Quarter: 2015Q4

REPORT INFORMATION
  Report Type: Report from Study
  Country: US (occurrence: US)
  Receive Date: 20150808
  Receipt Date: 20151009
  Transmission Date: 20160304
  Serious: Yes (Disabling)
  Sender: FDA-Public Use
  Company Number: PHEH2015US014731

PATIENT
  Age: 61 Year
  Sex: Female
  Weight: 52.27 kg

DRUGS (17)
  1. GLEEVEC [Suspect]
     Active Substance: IMATINIB MESYLATE
     Dosage: 100 MG, TID
     Route: 048
     Dates: start: 20150824
  2. FERROUS SULFATE [Concomitant]
     Active Substance: FERROUS SULFATE\FERROUS SULFATE, DRIED
     Indication: BLOOD IRON DECREASED
     Dosage: 1 DF, TID WITH FOOD
     Route: 048
  3. VICODIN [Concomitant]
     Active Substance: ACETAMINOPHEN\HYDROCODONE BITARTRATE
     Indication: PAIN
     Dosage: 5/300 MG, 1 TO 2 TABS EVERY 4 TO 6 HOURS AS NEEDED
     Route: 065
     Dates: start: 20150630
  4. SULFUR. [Concomitant]
     Active Substance: SULFUR
     Indication: PRODUCT USED FOR UNKNOWN INDICATION
     Route: 065
  5. DIAZEPAM. [Concomitant]
     Active Substance: DIAZEPAM
     Indication: ANXIETY
     Dosage: 5 MG, QID (PRN)
     Route: 048
  6. MORPHINE SULFATE. [Concomitant]
     Active Substance: MORPHINE SULFATE
     Indication: PRODUCT USED FOR UNKNOWN INDICATION
     Dosage: 1 DF, Q12H
     Route: 048
     Dates: start: 20150710
  7. ACETAMINOPHEN W/HYDROCODONE [Concomitant]
     Active Substance: ACETAMINOPHEN\HYDROCODONE
     Indication: PRODUCT USED FOR UNKNOWN INDICATION
     Dosage: 5/325 MG, UNK
     Route: 048
     Dates: start: 20150624
  8. ESTRACE [Concomitant]
     Active Substance: ESTRADIOL
     Indication: PRODUCT USED FOR UNKNOWN INDICATION
     Dosage: 0.1 MG/GM, UNK
     Route: 065
     Dates: start: 20150514
  9. GLEEVEC [Suspect]
     Active Substance: IMATINIB MESYLATE
     Indication: GASTROINTESTINAL STROMAL TUMOUR
     Dosage: 400 MG, UNK
     Route: 048
  10. MORPHINE [Concomitant]
     Active Substance: MORPHINE
     Indication: PRODUCT USED FOR UNKNOWN INDICATION
     Route: 065
  11. POLYETHYLENE GLYCOL [Concomitant]
     Active Substance: POLYETHYLENE GLYCOLS
     Indication: PRODUCT USED FOR UNKNOWN INDICATION
     Dosage: 3350 ORAL PACKET, MIX 1 PACKET IN 8 OUNCES OF LIQUID AND DRINK DAILY
     Route: 048
     Dates: start: 20150630
  12. VALIUM [Concomitant]
     Active Substance: DIAZEPAM
     Indication: PRODUCT USED FOR UNKNOWN INDICATION
     Route: 065
  13. SENOKOT//SENNA ALEXANDRINA [Concomitant]
     Indication: PRODUCT USED FOR UNKNOWN INDICATION
     Route: 065
  14. NORCO [Concomitant]
     Active Substance: ACETAMINOPHEN\HYDROCODONE BITARTRATE
     Indication: PAIN
     Dosage: 7.5/325 MG, 1 TO 2 TABS, 4 TO 6 HRS, PRN
     Route: 048
     Dates: start: 20150702
  15. CARAFATE [Concomitant]
     Active Substance: SUCRALFATE
     Indication: PRODUCT USED FOR UNKNOWN INDICATION
     Dosage: 1 G/10 ML (2 TEASPOONFULS 4 TIMES DAILY)
     Route: 048
     Dates: start: 20150722
  16. CITALOPRAM HYDROBROMIDE. [Concomitant]
     Active Substance: CITALOPRAM HYDROBROMIDE
     Indication: PRODUCT USED FOR UNKNOWN INDICATION
     Dosage: 1 DF, QD
     Route: 048
     Dates: start: 20150625
  17. LEVOFLOXACIN. [Concomitant]
     Active Substance: LEVOFLOXACIN
     Indication: PRODUCT USED FOR UNKNOWN INDICATION
     Dosage: 1 DF, QD, AS DIRECTED
     Route: 048
     Dates: start: 20150730

REACTIONS (9)
  - Peripheral swelling [Unknown]
  - White blood cell count increased [Unknown]
  - Haemoglobin decreased [Unknown]
  - Confusional state [Recovering/Resolving]
  - Melaena [Recovering/Resolving]
  - Haemoglobin increased [Unknown]
  - Gastrointestinal motility disorder [Unknown]
  - Stress [Not Recovered/Not Resolved]
  - Oedema [Unknown]

NARRATIVE: CASE EVENT DATE: 20150722
